FAERS Safety Report 4293526-5 (Version None)
Quarter: 2004Q1

REPORT INFORMATION
  Report Type: 
  Country: None (occurrence: None)
  Receive Date: 20040126
  Receipt Date: 20031103
  Transmission Date: 20041129
  Serious: No
  Sender: FDA-Public Use
  Company Number: USA031049779

PATIENT
  Age: 77 Year
  Sex: Female
  Weight: 65 kg

DRUGS (11)
  1. FORTEO [Suspect]
     Dates: start: 20030712
  2. QUININE [Concomitant]
  3. LASIX [Concomitant]
  4. POTASSIUM [Concomitant]
  5. ALLOPURINOL [Concomitant]
  6. MIACALCIN [Concomitant]
  7. VITAMIN B-12 [Concomitant]
  8. GARLIC [Concomitant]
  9. FISH OIL [Concomitant]
  10. FLAXSEED [Concomitant]
  11. OXYCODONE HCL [Concomitant]

REACTIONS (3)
  - ARTHRALGIA [None]
  - BACK PAIN [None]
  - MOBILITY DECREASED [None]
